FAERS Safety Report 5942398-9 (Version None)
Quarter: 2008Q4

REPORT INFORMATION
  Report Type: 
  Country: None (occurrence: None)
  Receive Date: 20081105
  Receipt Date: 20081027
  Transmission Date: 20090506
  Serious: Yes (Hospitalization)
  Sender: FDA-Public Use
  Company Number: US-WATSON-2008-05654

PATIENT
  Sex: Female
  Weight: 85.714 kg

DRUGS (9)
  1. FENTANYL-50 [Suspect]
     Indication: BACK PAIN
     Dosage: 1 PATCH, Q 72 HOURS
     Route: 062
  2. FENTANYL-50 [Suspect]
     Indication: OSTEOARTHRITIS
     Dosage: 1 PATCH, Q 72 HOURS
     Route: 062
     Dates: start: 20050101
  3. CYMBALTA [Concomitant]
     Indication: DEPRESSION
     Dosage: 30 MG, DAILY
     Route: 065
  4. OXYBUTYNIN XL [Concomitant]
     Indication: BLADDER DISORDER
     Dosage: 10 MG, DAILY
     Route: 065
  5. VICODIN [Concomitant]
     Indication: BREAKTHROUGH PAIN
  6. RESTASIS [Concomitant]
     Indication: DRUG USE FOR UNKNOWN INDICATION
     Dosage: UNK
     Route: 047
  7. SENOKOT [Concomitant]
     Indication: DRUG USE FOR UNKNOWN INDICATION
  8. MULTI-VITAMINS [Concomitant]
     Indication: DRUG USE FOR UNKNOWN INDICATION
  9. CALCIUM WITH VITAMIN D             /00944201/ [Concomitant]
     Indication: DRUG USE FOR UNKNOWN INDICATION
     Dosage: UNK

REACTIONS (20)
  - ANOREXIA [None]
  - ASTHENIA [None]
  - ATELECTASIS [None]
  - BACK PAIN [None]
  - CHILLS [None]
  - DEPRESSED MOOD [None]
  - DEPRESSION [None]
  - DEVICE RELATED INFECTION [None]
  - DRUG INEFFECTIVE [None]
  - HEADACHE [None]
  - HYPERHIDROSIS [None]
  - LETHARGY [None]
  - MENTAL STATUS CHANGES [None]
  - NAUSEA [None]
  - PLEURAL EFFUSION [None]
  - PNEUMONIA [None]
  - PYREXIA [None]
  - SUICIDAL IDEATION [None]
  - VOMITING [None]
  - WITHDRAWAL SYNDROME [None]
